FAERS Safety Report 5245582-5 (Version None)
Quarter: 2007Q1

REPORT INFORMATION
  Report Type: 
  Country: None (occurrence: None)
  Receive Date: 20070223
  Receipt Date: 20070220
  Transmission Date: 20070707
  Serious: Yes (Life-Threatening, Other)
  Sender: FDA-Public Use
  Company Number: FR-PFIZER INC-2007010365

PATIENT
  Sex: Male
  Weight: 68 kg

DRUGS (2)
  1. CELEBREX [Suspect]
     Indication: TENDONITIS
     Dosage: DAILY DOSE:400MG
     Route: 048
  2. CELEBREX [Suspect]
     Indication: POLYARTHRITIS

REACTIONS (2)
  - ACUTE CORONARY SYNDROME [None]
  - CARDIAC FAILURE [None]
